FAERS Safety Report 8431751-X (Version None)
Quarter: 2012Q2

REPORT INFORMATION
  Report Type: 
  Country: None (occurrence: None)
  Receive Date: 20120607
  Receipt Date: 20120607
  Transmission Date: 20120825
  Serious: Yes (Hospitalization)
  Sender: FDA-Public Use
  Company Number: None

PATIENT
  Age: 58 Year
  Sex: Male

DRUGS (1)
  1. CYCLOPHOSPHAMIDE [Suspect]
     Indication: MANTLE CELL LYMPHOMA
     Dosage: 750 MG IV
     Route: 042
     Dates: start: 20100309, end: 20100311

REACTIONS (3)
  - VOMITING [None]
  - NAUSEA [None]
  - DIARRHOEA [None]
